FAERS Safety Report 16914400 (Version 1)
Quarter: 2019Q4

REPORT INFORMATION
  Report Type: Spontaneous
  Country: FR (occurrence: FR)
  Receive Date: 20191014
  Receipt Date: 20191014
  Transmission Date: 20200122
  Serious: Yes (Other)
  Sender: FDA-Public Use
  Company Number: FR-SA-2019SA277457

PATIENT
  Age: 65 Year
  Sex: Male

DRUGS (4)
  1. TEMOZOLOMIDE. [Suspect]
     Active Substance: TEMOZOLOMIDE
     Indication: GLIOBLASTOMA
     Route: 047
     Dates: start: 20190208, end: 20190212
  2. RIFADINE [Suspect]
     Active Substance: RIFAMPIN
     Indication: SUBDURAL ABSCESS
     Route: 048
     Dates: start: 20190703, end: 20190731
  3. DEPATUXIZUMAB MAFODOTIN [Suspect]
     Active Substance: DEPATUXIZUMAB MAFODOTIN
     Indication: GLIOBLASTOMA
     Route: 041
     Dates: start: 20190208, end: 20190222
  4. CARBOPLATIN. [Suspect]
     Active Substance: CARBOPLATIN
     Indication: GLIOBLASTOMA
     Route: 041
     Dates: start: 20190524, end: 20190524

REACTIONS (2)
  - Hepatocellular injury [Not Recovered/Not Resolved]
  - Cholestasis [Not Recovered/Not Resolved]

NARRATIVE: CASE EVENT DATE: 20190220
